FAERS Safety Report 18627615 (Version 1)
Quarter: 2020Q4

REPORT INFORMATION
  Report Type: Spontaneous
  Country: US (occurrence: US)
  Receive Date: 20201217
  Receipt Date: 20201217
  Transmission Date: 20210114
  Serious: Yes (Other)
  Sender: FDA-Public Use
  Company Number: US-LANNETT COMPANY, INC.-US-2020LAN000326

PATIENT
  Sex: Male

DRUGS (1)
  1. LACTULOSE. [Suspect]
     Active Substance: LACTULOSE
     Indication: HEPATIC ENCEPHALOPATHY
     Dosage: 30 ML, TID
     Route: 048

REACTIONS (7)
  - Chronic kidney disease [Unknown]
  - Eructation [Unknown]
  - Flatulence [Unknown]
  - Retching [Unknown]
  - Abdominal discomfort [Unknown]
  - Product use complaint [Unknown]
  - Decreased appetite [Unknown]
